FAERS Safety Report 18948268 (Version 3)
Quarter: 2021Q2

REPORT INFORMATION
  Report Type: Report from Study
  Country: US (occurrence: US)
  Receive Date: 20210227
  Receipt Date: 20210608
  Transmission Date: 20210717
  Serious: No
  Sender: FDA-Public Use
  Company Number: NVSC2021US042179

PATIENT
  Age: 49 Year
  Sex: Female

DRUGS (3)
  1. ENTRESTO [Suspect]
     Active Substance: SACUBITRIL\VALSARTAN
     Indication: ISCHAEMIC CARDIOMYOPATHY
     Dosage: 50 MG, BID (24/26 MG)
     Route: 048
     Dates: start: 20210208
  2. ENTRESTO [Suspect]
     Active Substance: SACUBITRIL\VALSARTAN
     Dosage: 50 MG, BID (24/26)
     Route: 048
  3. ENTRESTO [Suspect]
     Active Substance: SACUBITRIL\VALSARTAN
     Dosage: 24.26 MG, BID
     Route: 048
     Dates: start: 20210211

REACTIONS (10)
  - Dyspnoea [Unknown]
  - Feeling abnormal [Unknown]
  - Depression [Unknown]
  - Hypersomnia [Unknown]
  - Weight increased [Recovering/Resolving]
  - Product prescribing error [Unknown]
  - Post-traumatic stress disorder [Unknown]
  - Anxiety disorder [Unknown]
  - Product dose omission issue [Unknown]
  - Wrong technique in product usage process [Not Recovered/Not Resolved]

NARRATIVE: CASE EVENT DATE: 20210208
